FAERS Safety Report 6363377-6 (Version None)
Quarter: 2009Q3

REPORT INFORMATION
  Report Type: 
  Country: None (occurrence: None)
  Receive Date: 20090919
  Receipt Date: 20090710
  Transmission Date: 20100115
  Serious: No
  Sender: FDA-Public Use
  Company Number: US-ABBOTT-09P-163-0582339-00

PATIENT
  Sex: Female
  Weight: 76.272 kg

DRUGS (6)
  1. HUMIRA [Suspect]
     Indication: PSORIASIS
     Dates: start: 20090410
  2. ATENOLOL [Concomitant]
     Indication: PANIC ATTACK
  3. ACTOS [Concomitant]
     Indication: DRUG USE FOR UNKNOWN INDICATION
  4. METFORMIN HCL [Concomitant]
     Indication: DRUG USE FOR UNKNOWN INDICATION
  5. CYCLOSPORINE [Concomitant]
     Indication: DRUG USE FOR UNKNOWN INDICATION
     Dates: start: 20090526
  6. ON 13 MEDICATIONS, CAN NOT REMEMBER ALL OF THEM [Concomitant]
     Indication: DRUG USE FOR UNKNOWN INDICATION

REACTIONS (9)
  - BRONCHITIS [None]
  - FATIGUE [None]
  - GINGIVAL BLEEDING [None]
  - INJECTION SITE NODULE [None]
  - NASAL CONGESTION [None]
  - NASOPHARYNGITIS [None]
  - PSORIASIS [None]
  - SINUSITIS [None]
  - TOOTH EXTRACTION [None]
